FAERS Safety Report 6625778-8 (Version None)
Quarter: 2010Q1

REPORT INFORMATION
  Report Type: 
  Country: None (occurrence: None)
  Receive Date: 20100310
  Receipt Date: 20100302
  Transmission Date: 20100710
  Serious: Yes (Hospitalization)
  Sender: FDA-Public Use
  Company Number: US-SANOFI-AVENTIS-2010SA012420

PATIENT
  Age: 87 Year
  Sex: Female
  Weight: 92.5 kg

DRUGS (9)
  1. MULTAQ [Suspect]
     Route: 048
     Dates: start: 20091214, end: 20100201
  2. QUINOLONE ANTIBACTERIALS [Suspect]
  3. METOPROLOL [Concomitant]
  4. LOZOL [Concomitant]
  5. POTASSIUM [Concomitant]
  6. ASPIRIN [Concomitant]
  7. MICARDIS [Concomitant]
  8. NORVASC [Concomitant]
  9. COUMADIN [Concomitant]

REACTIONS (6)
  - ALANINE AMINOTRANSFERASE INCREASED [None]
  - ASPARTATE AMINOTRANSFERASE INCREASED [None]
  - CARDIAC FAILURE [None]
  - DYSPNOEA [None]
  - HEPATOCELLULAR INJURY [None]
  - RESPIRATORY TRACT INFECTION [None]
